FAERS Safety Report 7495284-X (Version None)
Quarter: 2011Q2

REPORT INFORMATION
  Report Type: 
  Country: None (occurrence: None)
  Receive Date: 20110523
  Receipt Date: 20110519
  Transmission Date: 20111010
  Serious: Yes (Death, Hospitalization)
  Sender: FDA-Public Use
  Company Number: PH-BRISTOL-MYERS SQUIBB COMPANY-15683931

PATIENT
  Sex: Male

DRUGS (12)
  1. DOXOFYLLINE [Concomitant]
     Dates: start: 20110114
  2. MULTI-VITAMIN [Concomitant]
     Dates: start: 20110114
  3. AMLODIPINE [Concomitant]
     Dates: start: 20110114
  4. SPIRIVA [Concomitant]
     Dates: start: 20110114
  5. GEMCITABINE HCL [Suspect]
     Indication: NON-SMALL CELL LUNG CANCER
     Dosage: LAST INFUSION ON 10APR11 NO: OF INFUSIONS-5 INTERRUPTED ON 14APR11
     Dates: start: 20110224
  6. ACETYLCYSTEINE [Concomitant]
     Dates: start: 20110114
  7. LOSARTAN [Concomitant]
     Dates: start: 20110114
  8. CISPLATIN [Suspect]
     Indication: NON-SMALL CELL LUNG CANCER
     Dosage: LAST INFUSION ON 10APR11 NO: OF INF-3 INTERRUPTED ON 14APR11
     Dates: start: 20110224
  9. ETORICOXIB [Concomitant]
     Dates: start: 20110316
  10. LACTULOSE [Concomitant]
     Dates: start: 20110404, end: 20110410
  11. ACETAMINOPHEN [Concomitant]
     Dates: start: 20110316
  12. TRAMADOL HCL [Concomitant]
     Dates: start: 20110316

REACTIONS (5)
  - MULTI-ORGAN FAILURE [None]
  - DEHYDRATION [None]
  - CARDIO-RESPIRATORY ARREST [None]
  - RENAL FAILURE ACUTE [None]
  - NEOPLASM MALIGNANT [None]
